FAERS Safety Report 13076283 (Version 3)
Quarter: 2017Q3

REPORT INFORMATION
  Report Type: Spontaneous
  Country: CA (occurrence: CA)
  Receive Date: 20161230
  Receipt Date: 20170807
  Transmission Date: 20171127
  Serious: Yes (Other)
  Sender: FDA-Public Use
  Company Number: CA-GLAXOSMITHKLINE-A0975997A

PATIENT
  Age: 41 Year
  Sex: Female
  Weight: 105 kg

DRUGS (11)
  1. BENLYSTA [Suspect]
     Active Substance: BELIMUMAB
     Dosage: 1120 MG, UNK
  2. BENLYSTA [Suspect]
     Active Substance: BELIMUMAB
     Indication: SYSTEMIC LUPUS ERYTHEMATOSUS
     Dosage: DOSE REPORTED ON 19FEB2014 WAS 1048 MG EVERY 4 WEEKS, MO
     Route: 042
     Dates: start: 20120418
  3. CYMBALTA [Concomitant]
     Active Substance: DULOXETINE HYDROCHLORIDE
     Indication: PAIN
     Dosage: UNK
  4. BENLYSTA [Suspect]
     Active Substance: BELIMUMAB
     Dosage: 1150 MG, UNK
     Route: 042
     Dates: start: 201512
  5. PLAQUENIL [Concomitant]
     Active Substance: HYDROXYCHLOROQUINE SULFATE
     Dosage: UNK
  6. BENLYSTA [Suspect]
     Active Substance: BELIMUMAB
     Dosage: 1070 MG, UNK
     Route: 042
     Dates: start: 20151223
  7. BENLYSTA [Suspect]
     Active Substance: BELIMUMAB
     Dosage: 1120 UNK, UNK
  8. BENLYSTA [Suspect]
     Active Substance: BELIMUMAB
     Dosage: 1048 MG, UNK
     Route: 042
     Dates: start: 201411
  9. BENLYSTA [Suspect]
     Active Substance: BELIMUMAB
     Dosage: 1150 MG, UNK
     Route: 042
  10. ELTROXIN [Concomitant]
     Active Substance: LEVOTHYROXINE
     Indication: SUPPLEMENTATION THERAPY
     Dosage: UNK
  11. PLAQUENIL [Concomitant]
     Active Substance: HYDROXYCHLOROQUINE SULFATE
     Indication: INFLAMMATION
     Dosage: 200 MG, 1D
     Route: 048

REACTIONS (21)
  - Fatigue [Unknown]
  - Adrenal insufficiency [Unknown]
  - Arthralgia [Unknown]
  - Pyrexia [Unknown]
  - Asthenia [Unknown]
  - Rash [Unknown]
  - Lower respiratory tract infection [Unknown]
  - Alopecia [Unknown]
  - Mouth ulceration [Unknown]
  - Headache [Unknown]
  - Musculoskeletal stiffness [Unknown]
  - Foot fracture [Unknown]
  - Viral infection [Recovered/Resolved]
  - Nausea [Recovered/Resolved]
  - Nodule [Unknown]
  - Myalgia [Unknown]
  - Skin lesion [Unknown]
  - Pneumonia [Recovered/Resolved]
  - Haemoptysis [Recovered/Resolved]
  - Mobility decreased [Unknown]
  - Abscess oral [Unknown]

NARRATIVE: CASE EVENT DATE: 20120418
